FAERS Safety Report 21826136 (Version 1)
Quarter: 2023Q1

REPORT INFORMATION
  Report Type: Spontaneous
  Country: US (occurrence: US)
  Receive Date: 20230106
  Receipt Date: 20230106
  Transmission Date: 20230418
  Serious: Yes (Other)
  Sender: FDA-Public Use
  Company Number: US-drreddys-LIT/USA/23/0159388

PATIENT
  Age: 61 Year
  Sex: Female

DRUGS (2)
  1. DOCETAXEL [Suspect]
     Active Substance: DOCETAXEL
     Indication: Lung carcinoma cell type unspecified stage IV
     Route: 042
  2. DOCETAXEL [Suspect]
     Active Substance: DOCETAXEL
     Route: 048

REACTIONS (2)
  - Therapy partial responder [Unknown]
  - Fatigue [Unknown]
